FAERS Safety Report 9514764 (Version 3)
Quarter: 2013Q3

REPORT INFORMATION
  Report Type: Spontaneous
  Country: US (occurrence: None)
  Receive Date: 20130819
  Receipt Date: 20130912
  Transmission Date: 20140515
  Serious: Yes (Hospitalization)
  Sender: FDA-Public Use
  Company Number: 2013PROUSA03062

PATIENT
  Age: 79 Year
  Sex: Male
  Weight: 115.2 kg

DRUGS (11)
  1. PROVENGE [Suspect]
     Indication: PROSTATE CANCER METASTATIC
     Dosage: SINGLE
     Route: 042
     Dates: start: 20130718, end: 20130718
  2. METOPROLOL (METOPROLOL TARTRATE) [Concomitant]
  3. LISINOPRIL (LISINOPRIL) [Concomitant]
  4. LASIX (FUROSEMIDE) [Concomitant]
  5. NORVASC (AMLODIPINE BESILATE) [Concomitant]
  6. ZEITA ( ESETIMIBE) [Concomitant]
  7. ZANTAC (RANITIDINE HYDROCHLORIDE) [Concomitant]
  8. GLIMPIRIDE (GLIMPIRIDE) [Concomitant]
  9. CYMBALTA ( DULOXETINE HYDROCHLORIDE) [Concomitant]
  10. HYDROCODONE (HYDROCODONEBITARTRATE) [Concomitant]
  11. ASPIRIN (ACETYLSALICYLUS ACID) [Concomitant]

REACTIONS (2)
  - Pneumonia [None]
  - Hydronephrosis [None]
